FAERS Safety Report 25189146 (Version 1)
Quarter: 2025Q2

REPORT INFORMATION
  Report Type: Other
  Country: US (occurrence: US)
  Receive Date: 20250411
  Receipt Date: 20250411
  Transmission Date: 20250717
  Serious: Yes (Life-Threatening, Hospitalization, Other)
  Sender: EMD SERONO INC
  Company Number: US-Merck Healthcare KGaA-2025016857

PATIENT
  Age: 65 Year
  Sex: Female

DRUGS (1)
  1. METFORMIN [Suspect]
     Active Substance: METFORMIN HYDROCHLORIDE
     Indication: Type 2 diabetes mellitus

REACTIONS (7)
  - Encephalopathy [Unknown]
  - Shock [Unknown]
  - Lactic acidosis [Recovered/Resolved]
  - Anuria [Not Recovered/Not Resolved]
  - Blood creatinine increased [Unknown]
  - Toxicity to various agents [Unknown]
  - Vomiting [Unknown]
